FAERS Safety Report 9155609 (Version 1)
Quarter: 2013Q1

REPORT INFORMATION
  Report Type: Report from Study
  Country: JP (occurrence: JP)
  Receive Date: 20130311
  Receipt Date: 20130311
  Transmission Date: 20140127
  Serious: Yes (Other)
  Sender: FDA-Public Use
  Company Number: JP-VIIV HEALTHCARE LIMITED-B0873328A

PATIENT
  Age: 32 Year
  Sex: Male

DRUGS (10)
  1. LEXIVA [Suspect]
     Indication: HIV INFECTION
     Dosage: 700MG TWICE PER DAY
     Route: 048
     Dates: start: 20050324
  2. EPIVIR [Suspect]
     Indication: HIV INFECTION
     Dosage: 150MG TWICE PER DAY
     Route: 048
     Dates: start: 20030502
  3. ZERIT [Concomitant]
     Indication: HIV INFECTION
     Route: 048
     Dates: start: 20030502
  4. NORVIR [Concomitant]
     Indication: HIV INFECTION
     Route: 048
     Dates: start: 20030502
  5. PROZEI [Concomitant]
     Indication: HIV INFECTION
     Route: 048
     Dates: start: 20030502, end: 20030827
  6. PROZEI [Concomitant]
     Indication: HIV INFECTION
     Route: 048
     Dates: start: 20030828, end: 20030924
  7. PROZEI [Concomitant]
     Indication: HIV INFECTION
     Route: 048
     Dates: start: 20030925, end: 20050323
  8. STOCRIN [Concomitant]
     Indication: HIV INFECTION
     Route: 048
     Dates: start: 20030502
  9. LAC B [Concomitant]
     Indication: DIARRHOEA
     Dosage: 1000MG TWICE PER DAY
     Route: 048
     Dates: start: 20040401, end: 20040929
  10. LAC B [Concomitant]
     Indication: DIARRHOEA
     Dosage: 1000MG THREE TIMES PER DAY
     Route: 048
     Dates: start: 20040930

REACTIONS (3)
  - Duodenal ulcer [Recovered/Resolved]
  - Diarrhoea [Recovered/Resolved]
  - Hyperlipidaemia [Recovering/Resolving]
